FAERS Safety Report 9270458 (Version 3)
Quarter: 2013Q2

REPORT INFORMATION
  Report Type: Spontaneous
  Country: US (occurrence: US)
  Receive Date: 20130503
  Receipt Date: 20130605
  Transmission Date: 20140414
  Serious: Yes (Hospitalization, Other)
  Sender: FDA-Public Use
  Company Number: US-PFIZER INC-2013137053

PATIENT
  Age: 79 Year
  Sex: Female

DRUGS (6)
  1. ATORVASTATIN CALCIUM [Suspect]
     Dosage: UNK
  2. CIPROFLOXACIN [Suspect]
     Indication: PROPHYLAXIS URINARY TRACT INFECTION
     Dosage: UNK
  3. SPIRONOLACTONE [Suspect]
     Dosage: UNK
  4. VANCOMYCIN HCL [Suspect]
     Dosage: UNK
  5. ASPIRIN [Suspect]
     Dosage: UNK
  6. TORADOL [Suspect]
     Dosage: UNK

REACTIONS (8)
  - Drug reaction with eosinophilia and systemic symptoms [Recovering/Resolving]
  - Cerebrovascular accident [Recovered/Resolved]
  - Cerebral ischaemia [Recovered/Resolved]
  - Delirium [Recovered/Resolved]
  - VIIth nerve paralysis [Recovered/Resolved]
  - Dysarthria [Recovered/Resolved]
  - Oliguria [Unknown]
  - Somnolence [Recovered/Resolved]
